FAERS Safety Report 6273353-X (Version None)
Quarter: 2009Q3

REPORT INFORMATION
  Report Type: 
  Country: None (occurrence: None)
  Receive Date: 20090720
  Receipt Date: 20090715
  Transmission Date: 20100115
  Serious: Yes (Hospitalization, Other)
  Sender: FDA-Public Use
  Company Number: US-ELI_LILLY_AND_COMPANY-US200905006044

PATIENT
  Sex: Female
  Weight: 76.1 kg

DRUGS (3)
  1. GEMZAR [Suspect]
     Indication: NON-SMALL CELL LUNG CANCER
  2. ALIMTA [Suspect]
     Indication: NON-SMALL CELL LUNG CANCER
  3. AVASTIN [Concomitant]
     Indication: NON-SMALL CELL LUNG CANCER

REACTIONS (5)
  - CONSTIPATION [None]
  - NEPHROPATHY TOXIC [None]
  - OEDEMA PERIPHERAL [None]
  - PNEUMONITIS [None]
  - RENAL FAILURE [None]
